FAERS Safety Report 4433164-4 (Version None)
Quarter: 2004Q3

REPORT INFORMATION
  Report Type: 
  Country: None (occurrence: None)
  Receive Date: 20040823
  Receipt Date: 20040809
  Transmission Date: 20050211
  Serious: Yes (Hospitalization, Other)
  Sender: FDA-Public Use
  Company Number: 2004054695

PATIENT
  Age: 45 Year
  Sex: Male
  Weight: 90.7194 kg

DRUGS (2)
  1. NEURONTIN [Suspect]
     Indication: DIABETIC NEUROPATHY
     Dosage: ORAL
     Route: 048
     Dates: start: 19940101, end: 20000301
  2. GLYBURIDE [Concomitant]

REACTIONS (5)
  - ANGINA PECTORIS [None]
  - HYPOACUSIS [None]
  - MYOCARDIAL INFARCTION [None]
  - STENT PLACEMENT [None]
  - SUICIDE ATTEMPT [None]
